FAERS Safety Report 9227291 (Version 1)
Quarter: 2013Q2

REPORT INFORMATION
  Report Type: Spontaneous
  Country: US (occurrence: None)
  Receive Date: 20130411
  Receipt Date: 20130411
  Transmission Date: 20140414
  Serious: No
  Sender: FDA-Public Use
  Company Number: None

PATIENT
  Age: 39 Year
  Sex: Male

DRUGS (1)
  1. COPAXONE [Suspect]
     Dosage: INJECT 20 MG (1 SYRINGE) SUBCUTANEOUSLY EVERY DAY AS DIRECTED BY YOUR PHYSICIAN.
     Route: 058

REACTIONS (4)
  - Micturition urgency [None]
  - Anxiety [None]
  - Nausea [None]
  - Rhinitis [None]
